FAERS Safety Report 17978379 (Version 4)
Quarter: 2020Q3

REPORT INFORMATION
  Report Type: Spontaneous
  Country: GB (occurrence: GB)
  Receive Date: 20200703
  Receipt Date: 20200831
  Transmission Date: 20201103
  Serious: Yes (Hospitalization)
  Sender: FDA-Public Use
  Company Number: GB-VERTEX PHARMACEUTICALS-2020-014034

PATIENT
  Age: 19 Year
  Sex: Male

DRUGS (14)
  1. BRAMITOB [Concomitant]
     Active Substance: TOBRAMYCIN
     Dosage: 2 MEGA UNITS 2X DAY ALTERNATIVE MONTHS WITH COLOMYCIN
  2. SALBUTEROL [Concomitant]
     Dosage: 2 PUFFS AS NEEDED
  3. HYPERTONIC SALINE SOLUTION [Concomitant]
     Active Substance: SODIUM CHLORIDE
     Dosage: 4 MILLILITER, QD
  4. VITAMIN E [Concomitant]
     Active Substance: .ALPHA.-TOCOPHEROL
     Dosage: 50 MG, QD
  5. BECLOMETHASONE [BECLOMETASONE DIPROPIONATE] [Concomitant]
     Dosage: 2 PUFF, TWICE DAILY
  6. SYMKEVI [Suspect]
     Active Substance: IVACAFTOR\TEZACAFTOR
     Indication: CYSTIC FIBROSIS
     Dosage: 100 MG TEZACAFTOR AND 150 MG IVACAFTOR, MORNING WITH GASTROSTOMY FEED
     Route: 048
     Dates: start: 20200106
  7. DOXYCLINE [DOXYCYCLINE] [Concomitant]
     Active Substance: DOXYCYCLINE
     Dosage: 100 MG, QD
  8. OMEPRAZOLE. [Concomitant]
     Active Substance: OMEPRAZOLE
     Dosage: 2 TIMES A DAY
  9. CREON 40000 [Concomitant]
     Dosage: 8 TIMES A DAY
  10. URSODEOXYCHOLIC ACID [Concomitant]
     Active Substance: URSODIOL
     Dosage: 2 TIMES A DAY
  11. KALYDECO [Suspect]
     Active Substance: IVACAFTOR
     Indication: CYSTIC FIBROSIS
     Dosage: 150 MG IVACAFTOR IN EVENING WITH SUPPLEMENT
     Route: 048
     Dates: start: 20200106
  12. AVAMYS [Concomitant]
     Active Substance: FLUTICASONE FUROATE
     Dosage: 2 SQUIRTS EACH SIDE AS REQUIRED
  13. PULMOZYME [Concomitant]
     Active Substance: DORNASE ALFA
     Dosage: UNK, BID
  14. CREON [Concomitant]
     Active Substance: PANCRELIPASE AMYLASE\PANCRELIPASE LIPASE\PANCRELIPASE PROTEASE
     Dosage: 1 CAP/ 5 GRAM FAT

REACTIONS (4)
  - Cystic fibrosis lung [Not Recovered/Not Resolved]
  - Drug ineffective [Unknown]
  - Infective pulmonary exacerbation of cystic fibrosis [Unknown]
  - General physical health deterioration [Not Recovered/Not Resolved]

NARRATIVE: CASE EVENT DATE: 202002
